FAERS Safety Report 9675090 (Version 2)
Quarter: 2014Q2

REPORT INFORMATION
  Report Type: Spontaneous
  Country: US (occurrence: None)
  Receive Date: 20131105
  Receipt Date: 20140507
  Transmission Date: 20141212
  Serious: Yes (Death)
  Sender: FDA-Public Use
  Company Number: 2013-US-002533

PATIENT
  Age: 49 Year
  Sex: Male

DRUGS (3)
  1. XYREM (SODIUM OXYBATE) ORAL SOLUTION, 500 MG/ML [Suspect]
     Indication: NARCOLEPSY
     Route: 048
     Dates: start: 200912, end: 2009
  2. XYREM (SODIUM OXYBATE) ORAL SOLUTION, 500 MG/ML [Suspect]
     Indication: CATAPLEXY
     Route: 048
     Dates: start: 200912, end: 2009
  3. XANAX (ALPRAZOLAM) [Suspect]
     Indication: INSOMNIA
     Dates: end: 201305

REACTIONS (7)
  - Cardiac failure [None]
  - Arteriosclerosis [None]
  - Insomnia [None]
  - Face injury [None]
  - Drug administration error [None]
  - Fall [None]
  - Confusional state [None]
